FAERS Safety Report 10130661 (Version 1)
Quarter: 2014Q2

REPORT INFORMATION
  Report Type: Spontaneous
  Country: US (occurrence: US)
  Receive Date: 20140428
  Receipt Date: 20140428
  Transmission Date: 20141212
  Serious: No
  Sender: FDA-Public Use
  Company Number: US-PFIZER INC-2014116709

PATIENT
  Age: 71 Year
  Sex: Male
  Weight: 61.2 kg

DRUGS (6)
  1. GABAPENTIN [Suspect]
     Indication: HERPES ZOSTER
     Dosage: 900 MG, 3X/DAY (300MGX3 AT ONE TIME)
     Dates: end: 20140424
  2. GABAPENTIN [Suspect]
     Indication: PAIN
  3. CODEINE [Concomitant]
     Dosage: 30 MG, UNK
  4. TYLENOL [Concomitant]
     Dosage: UNK
  5. NOVOLOG [Concomitant]
     Indication: DIABETES MELLITUS
     Dosage: UNK
  6. LANTUS [Concomitant]
     Indication: DIABETES MELLITUS
     Dosage: 20 IU, 2X/DAY

REACTIONS (1)
  - Drug ineffective [Unknown]
